FAERS Safety Report 4848155-9 (Version None)
Quarter: 2005Q4

REPORT INFORMATION
  Report Type: 
  Country: None (occurrence: None)
  Receive Date: 20051208
  Receipt Date: 20051128
  Transmission Date: 20060501
  Serious: Yes (Hospitalization, Other)
  Sender: FDA-Public Use
  Company Number: US-JNJFOC-20051004709

PATIENT
  Sex: Female
  Weight: 112.95 kg

DRUGS (39)
  1. REMICADE [Suspect]
     Route: 042
  2. REMICADE [Suspect]
     Route: 042
  3. REMICADE [Suspect]
     Route: 042
  4. REMICADE [Suspect]
     Route: 042
  5. REMICADE [Suspect]
     Route: 042
  6. REMICADE [Suspect]
     Route: 042
  7. CLARITIN [Concomitant]
     Indication: PREMEDICATION
     Route: 048
  8. TYLENOL [Concomitant]
     Indication: PREMEDICATION
  9. ALBUTEROL [Concomitant]
     Dosage: 0.042% EVERY 2 HOURS AS NEEDED.
  10. ASPIRIN [Concomitant]
     Route: 048
  11. ATENOLOL [Concomitant]
     Indication: BLOOD PRESSURE
     Route: 048
  12. NOVOLIN 70/30 [Concomitant]
  13. NOVOLIN 70/30 [Concomitant]
     Dosage: 70 UNITS-30 UNITS/ML TAKE AS DIRECTED
  14. COLACE [Concomitant]
     Dosage: AT BEDTIME
     Route: 048
  15. COUMADIN [Concomitant]
     Dosage: ON MONDAY AND WEDNESDAY
  16. COUMADIN [Concomitant]
     Indication: ATRIAL FIBRILLATION
  17. DIGOXIN [Concomitant]
     Route: 048
  18. FLEXERIL [Concomitant]
  19. FOSINOPRIL [Concomitant]
     Route: 048
  20. HERBAL MEDS [Concomitant]
     Indication: PSORIASIS
  21. HYDROXYZINE HYDROCHLORIDE [Concomitant]
     Dosage: 25 MG AS NEEDED
  22. OMEGA 3 [Concomitant]
     Indication: VITAMIN SUPPLEMENTATION
     Dosage: IN AM
  23. OXYCONTIN [Concomitant]
     Indication: PAIN
     Dosage: 20 MG AS NEEDED
  24. PRILOSEC OTC [Concomitant]
     Route: 048
  25. SENNA LAX [Concomitant]
     Indication: LAXATIVE SUPPORTIVE CARE
     Dosage: 8.8 MG/5 ML, 2 TABLETS EVERY EVENING
  26. VITAMIN E [Concomitant]
     Indication: VITAMIN SUPPLEMENTATION
     Route: 048
  27. REGULAR INSULIN [Concomitant]
     Dosage: SLIDING SCALE
  28. LASIX [Concomitant]
     Dosage: IN MORNING
  29. LESCOL [Concomitant]
     Dosage: IN EVENING
     Route: 048
  30. LORAZEPAM [Concomitant]
     Indication: ANXIETY
  31. METALACONE [Concomitant]
  32. CETAPHIL/TRIAMCINOLONE [Concomitant]
     Dosage: AS NEEDED
     Route: 061
  33. DOCUSATE SODIUM [Concomitant]
     Route: 048
  34. METOLAZONE [Concomitant]
     Dosage: 5 MG AS NEEDED
  35. MINERAL SUPPLEMENTS [Concomitant]
  36. SOLU-MEDROL [Concomitant]
     Indication: PREMEDICATION
     Route: 042
  37. BENADRYL [Concomitant]
     Indication: PREMEDICATION
     Route: 042
  38. TRIMANOLONE [Concomitant]
     Dosage: AS NEEDED
     Route: 048
  39. INSULIN PURIFIED REGULAR PORK [Concomitant]
     Dosage: 100 UNITS/ML, SLIDING SCALE AS DIRECTED

REACTIONS (16)
  - ANGINA PECTORIS [None]
  - ATRIAL FIBRILLATION [None]
  - CARDIAC FAILURE CONGESTIVE [None]
  - CARDIOMEGALY [None]
  - CELLULITIS [None]
  - DYSPNOEA [None]
  - FEELING ABNORMAL [None]
  - FLUSHING [None]
  - INFLUENZA [None]
  - INFUSION RELATED REACTION [None]
  - LUNG DISORDER [None]
  - PNEUMONIA BACTERIAL [None]
  - PSORIATIC ARTHROPATHY [None]
  - RENAL FAILURE CHRONIC [None]
  - SLEEP DISORDER [None]
  - TOOTH FRACTURE [None]
